FAERS Safety Report 23891795 (Version 1)
Quarter: 2024Q2

REPORT INFORMATION
  Report Type: Spontaneous
  Country: ZA (occurrence: ZA)
  Receive Date: 20240524
  Receipt Date: 20240524
  Transmission Date: 20240716
  Serious: Yes (Other)
  Sender: FDA-Public Use
  Company Number: ZA-HALEON-2176593

PATIENT

DRUGS (1)
  1. ACETAMINOPHEN\ASPIRIN\CAFFEINE [Suspect]
     Active Substance: ACETAMINOPHEN\ASPIRIN\CAFFEINE
     Indication: Product used for unknown indication

REACTIONS (1)
  - Drug dependence [Unknown]
